FAERS Safety Report 25045869 (Version 1)
Quarter: 2025Q1

REPORT INFORMATION
  Report Type: Spontaneous
  Country: US (occurrence: None)
  Receive Date: 20250306
  Receipt Date: 20250306
  Transmission Date: 20250408
  Serious: Yes (Other)
  Sender: FDA-CTU
  Company Number: None

PATIENT
  Age: 68 Year
  Sex: Female
  Weight: 91.8 kg

DRUGS (6)
  1. LINZESS [Suspect]
     Active Substance: LINACLOTIDE
     Indication: Irritable bowel syndrome
     Dosage: 1 CAPSULE AT BEDTIME ORAL
     Route: 048
     Dates: start: 20250305, end: 20250305
  2. LOSARTAN [Concomitant]
     Active Substance: LOSARTAN
  3. FENOFIBRATE [Concomitant]
     Active Substance: FENOFIBRATE
  4. ADDERALL XR [Concomitant]
     Active Substance: AMPHETAMINE ASPARTATE\AMPHETAMINE SULFATE\DEXTROAMPHETAMINE SACCHARATE\DEXTROAMPHETAMINE SULFATE
  5. ADVIL [Concomitant]
     Active Substance: IBUPROFEN
  6. TYLENOL [Concomitant]
     Active Substance: ACETAMINOPHEN

REACTIONS (2)
  - Muscular weakness [None]
  - Muscle spasms [None]

NARRATIVE: CASE EVENT DATE: 20250305
